FAERS Safety Report 7124135-8 (Version None)
Quarter: 2010Q4

REPORT INFORMATION
  Report Type: 
  Country: None (occurrence: None)
  Receive Date: 20101126
  Receipt Date: 20101118
  Transmission Date: 20110411
  Serious: Yes (Other)
  Sender: FDA-Public Use
  Company Number: US-AMGEN-USASP2010005659

PATIENT

DRUGS (1)
  1. ENBREL [Suspect]
     Indication: PSORIATIC ARTHROPATHY
     Dates: start: 20030101

REACTIONS (3)
  - GLUCOSE TOLERANCE IMPAIRED [None]
  - SEASONAL ALLERGY [None]
  - SINUSITIS [None]
